FAERS Safety Report 5484857-1 (Version None)
Quarter: 2007Q4

REPORT INFORMATION
  Report Type: 
  Country: None (occurrence: None)
  Receive Date: 20071010
  Receipt Date: 20070921
  Transmission Date: 20080405
  Serious: Yes (Other)
  Sender: FDA-Public Use
  Company Number: 2007US-10232

PATIENT

DRUGS (1)
  1. VERAPAMIL HYDROCHLORIDE [Suspect]
     Indication: CLUSTER HEADACHE

REACTIONS (2)
  - ATRIOVENTRICULAR BLOCK FIRST DEGREE [None]
  - OFF LABEL USE [None]
